FAERS Safety Report 4476756-9 (Version None)
Quarter: 2004Q4

REPORT INFORMATION
  Report Type: 
  Country: None (occurrence: None)
  Receive Date: 20041013
  Receipt Date: 20040922
  Transmission Date: 20050328
  Serious: Yes (Hospitalization)
  Sender: FDA-Public Use
  Company Number: USA040978959

PATIENT
  Age: 67 Year
  Sex: Male
  Weight: 77 kg

DRUGS (2)
  1. CYMBALTA [Suspect]
     Indication: DEPRESSION
     Dosage: 60 MG/1 DAY
     Dates: start: 20040910, end: 20040916
  2. PAXIL [Concomitant]

REACTIONS (4)
  - ADVERSE EVENT [None]
  - AGGRESSION [None]
  - ERYTHEMA [None]
  - HOSTILITY [None]
